FAERS Safety Report 19240999 (Version 3)
Quarter: 2021Q2

REPORT INFORMATION
  Report Type: Spontaneous
  Country: US (occurrence: US)
  Receive Date: 20210511
  Receipt Date: 20210622
  Transmission Date: 20210717
  Serious: No
  Sender: FDA-Public Use
  Company Number: US-SA-2021SA143774

PATIENT
  Age: 11 Year
  Sex: Female

DRUGS (1)
  1. ADMELOG [Suspect]
     Active Substance: INSULIN LISPRO
     Indication: TYPE 1 DIABETES MELLITUS
     Dosage: UNK , PRN
     Route: 065

REACTIONS (3)
  - Drug ineffective [Recovered/Resolved]
  - Blood ketone body increased [Unknown]
  - Blood glucose increased [Recovered/Resolved]
